FAERS Safety Report 23242666 (Version 1)
Quarter: 2023Q4

REPORT INFORMATION
  Report Type: Spontaneous
  Country: US (occurrence: US)
  Receive Date: 20231129
  Receipt Date: 20231129
  Transmission Date: 20240110
  Serious: No
  Sender: FDA-Public Use
  Company Number: US-Dermavant-000875

PATIENT
  Age: 34 Year
  Sex: Female

DRUGS (4)
  1. TAPINAROF [Suspect]
     Active Substance: TAPINAROF
     Dosage: AREA OF APPLICATION: ARMS AND LEGS
     Route: 061
     Dates: start: 20230720
  2. VITAMINS [Concomitant]
     Active Substance: VITAMINS
  3. TRIAMCINOLONE [Concomitant]
     Active Substance: TRIAMCINOLONE
  4. CLOBETASOL [Concomitant]
     Active Substance: CLOBETASOL

REACTIONS (1)
  - Application site folliculitis [Recovered/Resolved]

NARRATIVE: CASE EVENT DATE: 20230905
